FAERS Safety Report 5353276-0 (Version None)
Quarter: 2007Q2

REPORT INFORMATION
  Report Type: 
  Country: None (occurrence: None)
  Receive Date: 20070518
  Receipt Date: 20070206
  Transmission Date: 20071010
  Serious: No
  Sender: FDA-Public Use
  Company Number: TPA2007A00336

PATIENT
  Age: 72 Year
  Sex: Female
  Weight: 68.0396 kg

DRUGS (6)
  1. ROZEREM [Suspect]
     Indication: INSOMNIA
     Dosage: 8 MG, HS, PER ORAL
     Route: 048
     Dates: start: 20070101, end: 20070103
  2. ZOCOR [Concomitant]
  3. HYZAAR [Concomitant]
  4. ATENOLOL [Concomitant]
  5. POTASSIUM (POTASSIUM) [Concomitant]
  6. PRILOSEC [Concomitant]

REACTIONS (2)
  - FEELING JITTERY [None]
  - MIDDLE INSOMNIA [None]
